FAERS Safety Report 8962493 (Version 1)
Quarter: 2012Q4

REPORT INFORMATION
  Report Type: 
  Country: AT (occurrence: AT)
  Receive Date: 20121213
  Receipt Date: 20121213
  Transmission Date: 20130627
  Serious: Yes (Hospitalization, Other)
  Sender: FDA-Public Use
  Company Number: AT-PFIZER INC-2012310014

PATIENT
  Age: 63 Year
  Sex: Female
  Weight: 62 kg

DRUGS (9)
  1. GENOTROPIN [Suspect]
     Dosage: 0.53 mg, 1x/day, 7 injections/week
     Route: 058
     Dates: start: 20010228
  2. LEVOTHYROXINE [Concomitant]
     Indication: THYROID DISORDER
     Dosage: UNK
     Dates: start: 19890101
  3. LEVOTHYROXINE [Concomitant]
     Indication: PRIMARY HYPOTHYROIDISM
  4. HYDROCORTISONE [Concomitant]
     Indication: ACTH DECREASED
     Dosage: UNK
     Dates: start: 19890101
  5. MAXI-KALZ [Concomitant]
     Indication: OSTEOPOROSIS
     Dosage: UNK
     Dates: start: 19970206
  6. ESTRADIOL [Concomitant]
     Indication: LUTEINISING HORMONE DEFICIENCY
     Dosage: UNK
     Dates: start: 19890101
  7. ESTRADIOL [Concomitant]
     Indication: FOLLICLE-STIMULATING HORMONE DEFICIENCY
  8. ESTRADIOL [Concomitant]
     Indication: OVARIAN DISORDER
  9. ESTRADIOL [Concomitant]
     Indication: HYPOGONADISM

REACTIONS (1)
  - Clavicle fracture [Unknown]
